FAERS Safety Report 19427960 (Version 1)
Quarter: 2021Q2

REPORT INFORMATION
  Report Type: Spontaneous
  Country: US (occurrence: US)
  Receive Date: 20210616
  Receipt Date: 20210616
  Transmission Date: 20210717
  Serious: No
  Sender: FDA-Public Use
  Company Number: US-ROCHE-2709684

PATIENT
  Age: 42 Year
  Sex: Female
  Weight: 79.45 kg

DRUGS (8)
  1. ACTEMRA [Suspect]
     Active Substance: TOCILIZUMAB
     Indication: STILL^S DISEASE
     Route: 042
     Dates: start: 20090101
  2. TRAZODONE [Concomitant]
     Active Substance: TRAZODONE HYDROCHLORIDE
     Dosage: UP TO 300 MG AS NEEDED FOR SLEEP ;ONGOING: YES
     Route: 048
     Dates: start: 2019
  3. NORCO [Concomitant]
     Active Substance: ACETAMINOPHEN\HYDROCODONE BITARTRATE
     Indication: PAIN
     Dosage: 10/325 MG TWO TO 3 TIMES A DAY AS NEEDED ;ONGOING: YES
     Route: 048
     Dates: start: 1999
  4. ZOFRAN [Concomitant]
     Active Substance: ONDANSETRON HYDROCHLORIDE
     Indication: NAUSEA
     Dosage: DISSOLVING TABLET
     Route: 048
     Dates: start: 2010
  5. LIDOCAINE. [Concomitant]
     Active Substance: LIDOCAINE
     Dosage: ONCE A DAY AS NEEDED ;ONGOING: YES
     Route: 061
  6. FLEXERIL [Concomitant]
     Active Substance: CYCLOBENZAPRINE HYDROCHLORIDE
     Indication: MUSCULOSKELETAL STIFFNESS
  7. ATIVAN [Concomitant]
     Active Substance: LORAZEPAM
     Indication: NAUSEA
     Route: 048
     Dates: start: 2010
  8. FLEXERIL [Concomitant]
     Active Substance: CYCLOBENZAPRINE HYDROCHLORIDE
     Indication: MYALGIA
     Route: 048
     Dates: start: 1999

REACTIONS (7)
  - Musculoskeletal stiffness [Not Recovered/Not Resolved]
  - Gastrooesophageal reflux disease [Recovered/Resolved]
  - Nausea [Not Recovered/Not Resolved]
  - Sleep disorder [Not Recovered/Not Resolved]
  - Monoclonal gammopathy [Not Recovered/Not Resolved]
  - Malaise [Not Recovered/Not Resolved]
  - Drug interaction [Unknown]

NARRATIVE: CASE EVENT DATE: 200901
